FAERS Safety Report 4545811-7 (Version None)
Quarter: 2005Q1

REPORT INFORMATION
  Report Type: 
  Country: None (occurrence: None)
  Receive Date: 20050103
  Receipt Date: 20041216
  Transmission Date: 20050727
  Serious: Yes (Hospitalization)
  Sender: FDA-Public Use
  Company Number: 203900

PATIENT
  Age: 44 Year
  Sex: Female

DRUGS (9)
  1. AVONEX [Suspect]
     Indication: MULTIPLE SCLEROSIS
     Dosage: IM
     Route: 030
     Dates: start: 20020101, end: 20040101
  2. AVONEX [Suspect]
     Indication: MULTIPLE SCLEROSIS
     Dosage: IM
     Route: 030
     Dates: start: 20040101, end: 20040801
  3. AVONEX [Suspect]
     Indication: MULTIPLE SCLEROSIS
     Dosage: IM
     Route: 030
     Dates: start: 20040816, end: 20040101
  4. TYLENOL [Concomitant]
  5. PAXIL [Concomitant]
  6. AMITRIPTYLINE HCL [Concomitant]
  7. PROTONIX [Concomitant]
  8. LOVENOX [Concomitant]
  9. NAFCILLIN [Concomitant]

REACTIONS (17)
  - ARTERIAL STENOSIS [None]
  - BABESIOSIS [None]
  - CARDIAC MURMUR [None]
  - COMPARTMENT SYNDROME [None]
  - DEPRESSION [None]
  - HUMAN EHRLICHIOSIS [None]
  - HYPOAESTHESIA [None]
  - INJECTION SITE PAIN [None]
  - MUSCLE ENZYME INCREASED [None]
  - OEDEMA PERIPHERAL [None]
  - PERICARDIAL EFFUSION [None]
  - RHABDOMYOLYSIS [None]
  - SEPSIS [None]
  - SOMNOLENCE [None]
  - TOOTH DISORDER [None]
  - URINARY TRACT INFECTION [None]
  - WEIGHT INCREASED [None]
